FAERS Safety Report 4947190-X (Version None)
Quarter: 2006Q1

REPORT INFORMATION
  Report Type: 
  Country: None (occurrence: None)
  Receive Date: 20060317
  Receipt Date: 20060310
  Transmission Date: 20060701
  Serious: Yes (Other)
  Sender: FDA-Public Use
  Company Number: US-SANOFI-SYNTHELABO-A03200601318

PATIENT
  Sex: Female

DRUGS (3)
  1. AMBIEN [Suspect]
     Indication: INSOMNIA
     Route: 048
     Dates: start: 20030101, end: 20050101
  2. CELEXA [Concomitant]
     Dosage: UNK
     Route: 048
  3. XENICAL [Concomitant]
     Dosage: UNK
     Route: 048

REACTIONS (4)
  - AMNESTIC DISORDER [None]
  - EATING DISORDER [None]
  - SEXUAL ASSAULT VICTIM [None]
  - SLEEP WALKING [None]
